FAERS Safety Report 9294967 (Version 1)
Quarter: 2013Q1

REPORT INFORMATION
  Report Type: Spontaneous
  Country: US (occurrence: None)
  Receive Date: 20121227
  Receipt Date: 20121227
  Transmission Date: 20140127
  Serious: No
  Sender: FDA-Public Use
  Company Number: PHEH2012US021335

PATIENT
  Age: 74 Year
  Sex: Female

DRUGS (9)
  1. AFINITOR [Suspect]
     Indication: TUBEROUS SCLEROSIS
     Route: 048
     Dates: start: 20121015
  2. ALPRAZOLAM (ALPRAZOLAM) [Suspect]
  3. CALCIUM (CALCIUM) [Concomitant]
  4. CITALOPRAM (CITALOPRAM) [Concomitant]
  5. HYDROCHLOROTHIAZID (HYDROCHLOROTHIAZIDE) [Concomitant]
  6. MULTIVITAMIN (ASCORBIC ACID, CALCIUM PANTOTHENATE, ERGOCALCIFEROL, NICOTINAMIDE, PYRICOXINE HYDROCHLORIDE, RETINOL, REBOFLAVIN, THIAMINE HYDROCHLORIDE) [Concomitant]
  7. NABUMETONE (NABUMETONE) [Concomitant]
  8. PHENYTOIN SODIUM EXTENDED (PHENYTOIN SODIUM) [Concomitant]
  9. HYDROCODONE W/ACETAMINOPHEN (HYDROCODONE BITARTRATE, PARACETAMOL) [Concomitant]

REACTIONS (2)
  - Stomatitis [None]
  - Weight decreased [None]
